FAERS Safety Report 9420627 (Version 3)
Quarter: 2013Q3

REPORT INFORMATION
  Report Type: Spontaneous
  Country: JP (occurrence: JP)
  Receive Date: 20130725
  Receipt Date: 20130909
  Transmission Date: 20140515
  Serious: Yes (Hospitalization, Other)
  Sender: FDA-Public Use
  Company Number: JP-PFIZER INC-2013213908

PATIENT
  Age: 76 Year
  Sex: Male
  Weight: 65 kg

DRUGS (4)
  1. UNASYN-S [Suspect]
     Indication: PNEUMONIA
     Dosage: 1.5 G, 2X/DAY
     Route: 042
     Dates: start: 20130703, end: 20130708
  2. MINOMYCIN [Suspect]
     Indication: PNEUMONIA
     Dosage: 100 MG, 2X/DAY
     Route: 042
     Dates: start: 20130703, end: 20130711
  3. VOLTAREN [Concomitant]
     Indication: PYREXIA
     Dosage: 25 MG, 1X/DAY
     Route: 054
     Dates: start: 20130703, end: 20130704
  4. BRUFEN [Concomitant]
     Indication: PYREXIA
     Dosage: 200 MG, 3X/DAY
     Route: 048
     Dates: start: 20130703, end: 20130716

REACTIONS (1)
  - Interstitial lung disease [Recovering/Resolving]
